FAERS Safety Report 21469498 (Version 1)
Quarter: 2022Q4

REPORT INFORMATION
  Report Type: Report from Study
  Country: NL (occurrence: None)
  Receive Date: 20221018
  Receipt Date: 20221018
  Transmission Date: 20230113
  Serious: Yes (Life-Threatening)
  Sender: FDA-Public Use
  Company Number: NL-ROCHE-3195494

PATIENT
  Age: 62 Year
  Sex: Female

DRUGS (2)
  1. BEVACIZUMAB [Suspect]
     Active Substance: BEVACIZUMAB
     Indication: Colorectal cancer metastatic
     Dosage: ON 25/APR/2022, SHE RECEIVED THE MOST RECENT DOSE OF BEVACIZUMAB PRIOR TO EVENT.
     Route: 042
     Dates: start: 20220310
  2. FLUOROURACIL\IRINOTECAN\LEUCOVORIN [Suspect]
     Active Substance: FLUOROURACIL\IRINOTECAN\LEUCOVORIN
     Indication: Colorectal cancer metastatic
     Dosage: ON 25/APR/2022, SHE RECEIVED THE MOST RECENT DOSE OF CALCIUM FOLINATE; FLUOROURACIL;IRINOTECAN HYDR
     Route: 042
     Dates: start: 20220310

REACTIONS (1)
  - Fascial rupture [Recovered/Resolved]

NARRATIVE: CASE EVENT DATE: 20220625
